FAERS Safety Report 5302461-2 (Version None)
Quarter: 2007Q1

REPORT INFORMATION
  Report Type: 
  Country: None (occurrence: None)
  Receive Date: 20070201
  Receipt Date: 20061128
  Transmission Date: 20070707
  Serious: No
  Sender: FDA-Public Use
  Company Number: 2006PV026014

PATIENT
  Age: 82 Year
  Sex: Female
  Weight: 77.1115 kg

DRUGS (10)
  1. BYETTA [Suspect]
     Indication: DIABETES MELLITUS NON-INSULIN-DEPENDENT
     Dosage: SEE IMAGE
     Route: 058
     Dates: start: 20060101, end: 20060101
  2. BYETTA [Suspect]
     Indication: DIABETES MELLITUS NON-INSULIN-DEPENDENT
     Dosage: SEE IMAGE
     Route: 058
     Dates: start: 20060101
  3. GLUCOPHAGE [Concomitant]
  4. PRILOSEC [Concomitant]
  5. PREMARIN [Concomitant]
  6. LIPITOR [Concomitant]
  7. TRICOR [Concomitant]
  8. ZETIA [Concomitant]
  9. DIOVAN [Concomitant]
  10. SANCTURA [Concomitant]

REACTIONS (1)
  - WEIGHT DECREASED [None]
